FAERS Safety Report 4638019-8 (Version None)
Quarter: 2005Q2

REPORT INFORMATION
  Report Type: 
  Country: None (occurrence: None)
  Receive Date: 20050418
  Receipt Date: 20041005
  Transmission Date: 20051028
  Serious: Yes (Hospitalization)
  Sender: FDA-Public Use
  Company Number: BE-BRISTOL-MYERS SQUIBB COMPANY-12722484

PATIENT
  Age: 70 Year
  Sex: Male
  Weight: 74 kg

DRUGS (10)
  1. CARBOPLATIN [Suspect]
     Indication: MESOTHELIOMA
     Route: 042
     Dates: start: 20040906, end: 20040906
  2. PEMETREXED DISODIUM [Suspect]
     Indication: MESOTHELIOMA
     Route: 042
     Dates: start: 20040906, end: 20040906
  3. ZOFRAN [Concomitant]
     Dates: start: 20040906, end: 20040906
  4. NOVABAN [Concomitant]
  5. MEDROL [Concomitant]
     Dates: start: 20040907, end: 20040911
  6. TEMESTA [Concomitant]
     Dates: start: 20040907, end: 20040911
  7. PRIMPERAN TAB [Concomitant]
     Dates: start: 20040907, end: 20040911
  8. DEXAMETHASONE [Concomitant]
     Dates: start: 20040905, end: 20040907
  9. FOLIC ACID [Concomitant]
     Dates: start: 20040602
  10. VITAMIN B-12 [Concomitant]
     Dates: start: 20040601, end: 20040809

REACTIONS (1)
  - ATRIAL FLUTTER [None]
